FAERS Safety Report 4428449-1 (Version None)
Quarter: 2004Q3

REPORT INFORMATION
  Report Type: 
  Country: None (occurrence: None)
  Receive Date: 20040809
  Receipt Date: 20040727
  Transmission Date: 20050211
  Serious: Yes (Other)
  Sender: FDA-Public Use
  Company Number: 200410601BCA

PATIENT
  Sex: Male

DRUGS (3)
  1. PLASBUMIN-5 [Suspect]
     Dosage: 500 ML, INTRAVENOUS
     Route: 042
     Dates: start: 19891110, end: 19891126
  2. PLASBUMIN-25 [Suspect]
     Dosage: 100 ML, INTRAVENOUS
     Route: 042
     Dates: start: 19891110, end: 19891126
  3. PLASBUMIN-25 [Suspect]
     Dosage: 100 ML, INTRAVENOUS
     Route: 042
     Dates: start: 19891110, end: 19891126

REACTIONS (1)
  - HEPATITIS C POSITIVE [None]
